FAERS Safety Report 9651022 (Version 2)
Quarter: 2013Q4

REPORT INFORMATION
  Report Type: Report from Study
  Country: CL (occurrence: CL)
  Receive Date: 20131029
  Receipt Date: 20131113
  Transmission Date: 20140711
  Serious: Yes (Hospitalization)
  Sender: FDA-Public Use
  Company Number: PHHY2013CL121045

PATIENT
  Age: 39 Year
  Sex: Female

DRUGS (5)
  1. LEPONEX [Suspect]
     Indication: SCHIZOPHRENIA
     Dosage: UNK
     Route: 048
  2. LEPONEX [Suspect]
     Dosage: 700 MG,
     Route: 048
  3. LEPONEX [Suspect]
     Dosage: 400 MG,
     Route: 048
  4. SULPILAN [Concomitant]
     Indication: SCHIZOPHRENIA
     Dosage: UNK
  5. CLONAZEPAM [Concomitant]
     Dosage: 0.5 MG, BID
     Route: 048

REACTIONS (2)
  - Depression [Recovered/Resolved]
  - Psychiatric decompensation [Recovered/Resolved]
